FAERS Safety Report 25159008 (Version 1)
Quarter: 2025Q2

REPORT INFORMATION
  Report Type: Spontaneous
  Country: KE (occurrence: KE)
  Receive Date: 20250404
  Receipt Date: 20250404
  Transmission Date: 20250717
  Serious: Yes (Other)
  Sender: AUROBINDO
  Company Number: KE-AUROBINDO-AUR-APL-2025-017470

PATIENT
  Age: 31 Month
  Sex: Male

DRUGS (10)
  1. CEFTRIAXONE [Suspect]
     Active Substance: CEFTRIAXONE
     Indication: Multisystem inflammatory syndrome in children
     Route: 065
  2. MEROPENEM [Suspect]
     Active Substance: MEROPENEM
     Indication: Multisystem inflammatory syndrome in children
     Route: 065
  3. AZITHROMYCIN [Suspect]
     Active Substance: AZITHROMYCIN
     Indication: Multisystem inflammatory syndrome in children
     Route: 065
  4. ACETAMINOPHEN [Suspect]
     Active Substance: ACETAMINOPHEN
     Indication: Multisystem inflammatory syndrome in children
     Route: 065
  5. IBUPROFEN [Suspect]
     Active Substance: IBUPROFEN
     Indication: Multisystem inflammatory syndrome in children
     Route: 065
  6. NYSTATIN [Suspect]
     Active Substance: NYSTATIN
     Indication: Multisystem inflammatory syndrome in children
     Route: 065
  7. IMMUNE GLOBULIN NOS [Suspect]
     Active Substance: IMMUNE GLOBULIN NOS
     Indication: Multisystem inflammatory syndrome in children
     Route: 042
  8. ASPIRIN [Suspect]
     Active Substance: ASPIRIN
     Indication: Multisystem inflammatory syndrome in children
     Route: 065
  9. VANCOMYCIN [Suspect]
     Active Substance: VANCOMYCIN
     Indication: Multisystem inflammatory syndrome in children
     Route: 065
  10. FLUCONAZOLE [Suspect]
     Active Substance: FLUCONAZOLE
     Indication: Multisystem inflammatory syndrome in children
     Route: 065

REACTIONS (1)
  - Drug ineffective [Unknown]
